FAERS Safety Report 4470209-X (Version None)
Quarter: 2004Q4

REPORT INFORMATION
  Report Type: 
  Country: None (occurrence: None)
  Receive Date: 20041008
  Receipt Date: 20030605
  Transmission Date: 20050328
  Serious: Yes (Hospitalization, Other)
  Sender: FDA-Public Use
  Company Number: US-MERCK-0306USA00779

PATIENT
  Age: 62 Year
  Sex: Male
  Weight: 96 kg

DRUGS (7)
  1. ASPIRIN [Concomitant]
     Route: 065
  2. LIPITOR [Concomitant]
     Route: 065
     Dates: end: 20010801
  3. PLAVIX [Concomitant]
     Route: 065
  4. PRILOSEC [Concomitant]
     Route: 065
     Dates: end: 20011126
  5. VIOXX [Suspect]
     Route: 048
     Dates: end: 20010801
  6. ZOCOR [Concomitant]
     Route: 048
     Dates: start: 20010801, end: 20011129
  7. ZOCOR [Concomitant]
     Route: 048
     Dates: start: 20011129

REACTIONS (17)
  - ADVERSE EVENT [None]
  - ANGINA PECTORIS [None]
  - BLOOD PRESSURE INCREASED [None]
  - CHEST DISCOMFORT [None]
  - CONVULSION [None]
  - CORONARY ARTERY STENOSIS [None]
  - DIAPHRAGMATIC HERNIA [None]
  - HAEMATOMA [None]
  - HEADACHE [None]
  - HYPOAESTHESIA [None]
  - HYPOTENSION [None]
  - INDURATION [None]
  - MYOCARDIAL INFARCTION [None]
  - MYOCARDIAL ISCHAEMIA [None]
  - NECK PAIN [None]
  - PARAESTHESIA [None]
  - RADICULOPATHY [None]
